FAERS Safety Report 8041115-9 (Version None)
Quarter: 2012Q1

REPORT INFORMATION
  Report Type: 
  Country: None (occurrence: None)
  Receive Date: 20120109
  Receipt Date: 20111230
  Transmission Date: 20120608
  Serious: Yes (Hospitalization)
  Sender: FDA-Public Use
  Company Number: 2012SP000315

PATIENT
  Age: 53 Year
  Sex: Female

DRUGS (1)
  1. REMERON [Suspect]
     Indication: PRODUCT USED FOR UNKNOWN INDICATION
     Dosage: 1515 MG;ONCE
     Dates: start: 20111125

REACTIONS (6)
  - SOMNOLENCE [None]
  - SUICIDE ATTEMPT [None]
  - ELECTROCARDIOGRAM QT PROLONGED [None]
  - TOXICITY TO VARIOUS AGENTS [None]
  - OVERDOSE [None]
  - VOMITING [None]
